FAERS Safety Report 25477081 (Version 1)
Quarter: 2025Q2

REPORT INFORMATION
  Report Type: Report from Study
  Country: CA (occurrence: CA)
  Receive Date: 20250625
  Receipt Date: 20250625
  Transmission Date: 20250716
  Serious: Yes (Other)
  Sender: ABBVIE
  Company Number: CA-ABBVIE-6339358

PATIENT
  Age: 73 Year
  Sex: Male

DRUGS (1)
  1. RISANKIZUMAB [Suspect]
     Active Substance: RISANKIZUMAB
     Indication: Crohn^s disease
     Route: 058

REACTIONS (4)
  - Brain neoplasm [Unknown]
  - Crohn^s disease [Unknown]
  - Glioblastoma [Unknown]
  - Abscess [Unknown]

NARRATIVE: CASE EVENT DATE: 20250301
